FAERS Safety Report 17488082 (Version 3)
Quarter: 2020Q2

REPORT INFORMATION
  Report Type: Spontaneous
  Country: US (occurrence: US)
  Receive Date: 20200303
  Receipt Date: 20200423
  Transmission Date: 20200713
  Serious: No
  Sender: FDA-Public Use
  Company Number: US-PFIZER INC-2020093705

PATIENT
  Age: 49 Year
  Sex: Female

DRUGS (1)
  1. XELJANZ XR [Suspect]
     Active Substance: TOFACITINIB CITRATE
     Dosage: 11 MG, 1X/DAY
     Route: 048
     Dates: start: 20200206, end: 20200402

REACTIONS (10)
  - Arthritis [Unknown]
  - Skin mass [Unknown]
  - Neoplasm skin [Unknown]
  - Dizziness [Unknown]
  - Neuralgia [Unknown]
  - Rash [Unknown]
  - Pruritus [Unknown]
  - Myalgia [Unknown]
  - Condition aggravated [Unknown]
  - Joint swelling [Unknown]

NARRATIVE: CASE EVENT DATE: 202003
